FAERS Safety Report 5139753-6 (Version None)
Quarter: 2006Q4

REPORT INFORMATION
  Report Type: 
  Country: None (occurrence: None)
  Receive Date: 20061023
  Receipt Date: 20061019
  Transmission Date: 20070319
  Serious: Yes (Life-Threatening, Hospitalization, Other)
  Sender: FDA-Public Use
  Company Number: HQWYE387020OCT06

PATIENT
  Age: 39 Year
  Sex: Female

DRUGS (1)
  1. RAPAMUNE [Suspect]
     Indication: HEART TRANSPLANT
     Dosage: 4 ML 1X PER 24 HR ORAL
     Route: 048
     Dates: start: 20050201, end: 20060309

REACTIONS (1)
  - HEART TRANSPLANT REJECTION [None]
